FAERS Safety Report 8917024 (Version 4)
Quarter: 2013Q3

REPORT INFORMATION
  Report Type: Report from Study
  Country: US (occurrence: US)
  Receive Date: 20121120
  Receipt Date: 20130827
  Transmission Date: 20140515
  Serious: Yes (Hospitalization)
  Sender: FDA-Public Use
  Company Number: US-ACTELION-A-US2012-74374

PATIENT
  Age: 71 Year
  Sex: Male

DRUGS (13)
  1. VENTAVIS [Suspect]
     Indication: PULMONARY ARTERIAL HYPERTENSION
     Dosage: UNK
     Route: 055
  2. TRACLEER [Suspect]
     Indication: PULMONARY ARTERIAL HYPERTENSION
     Dosage: 125 MG, BID
     Route: 048
     Dates: start: 201011
  3. TYVASO [Suspect]
  4. ASPIRIN [Concomitant]
  5. NOVOLOG [Concomitant]
     Dosage: 10 TO 20 UNITS, TID
  6. LANTUS [Concomitant]
     Dosage: 5 TO 45 UNITS, UNK
  7. POTASSIUM [Concomitant]
     Dosage: 15 TO 30
  8. SIMVASTATIN [Concomitant]
     Dosage: 80 MG, OD
  9. REVATIO [Concomitant]
     Dosage: 20 MG, UNK
  10. METOLAZONE [Concomitant]
     Dosage: 5 MG, OD
  11. LASIX [Concomitant]
     Dosage: 80 MG, OD
  12. PROTONIX [Concomitant]
     Dosage: 40 MG, UNK
  13. TAMOXIFEN [Concomitant]

REACTIONS (8)
  - Gastrointestinal haemorrhage [Unknown]
  - Haemorrhage [Recovering/Resolving]
  - Haemoglobin decreased [Unknown]
  - Transfusion [Unknown]
  - Haematochezia [Recovering/Resolving]
  - Chest pain [Unknown]
  - Dizziness [Unknown]
  - Dyspnoea [Unknown]
